FAERS Safety Report 6390940-9 (Version None)
Quarter: 2009Q4

REPORT INFORMATION
  Report Type: 
  Country: None (occurrence: None)
  Receive Date: 20091003
  Receipt Date: 20090922
  Transmission Date: 20100525
  Serious: No
  Sender: FDA-Public Use
  Company Number: 20096581

PATIENT
  Age: 74 Year
  Sex: Male
  Weight: 64 kg

DRUGS (11)
  1. BACLOFEN [Suspect]
     Indication: MUSCLE SPASTICITY
     Dosage: 450-800 MCG, DAILY, INTRATHECAL
     Route: 037
     Dates: start: 20090128
  2. SEDIEL [Concomitant]
  3. NEUROTROPIN [Concomitant]
  4. TEGRETOL [Concomitant]
  5. ALEVIATIN [Concomitant]
  6. DEPAS [Concomitant]
  7. MAGMITT [Concomitant]
  8. PURSENNID [Concomitant]
  9. PENTOBARBITAL SODIUM [Concomitant]
  10. CERCINE [Concomitant]
  11. MOBIC [Concomitant]

REACTIONS (1)
  - IMPLANT SITE EFFUSION [None]
